FAERS Safety Report 6142584-1 (Version None)
Quarter: 2009Q2

REPORT INFORMATION
  Report Type: 
  Country: None (occurrence: None)
  Receive Date: 20090403
  Receipt Date: 20090326
  Transmission Date: 20091009
  Serious: Yes (Hospitalization)
  Sender: FDA-Public Use
  Company Number: US-CELGENEUS-163-21880-09011386

PATIENT
  Age: 63 Year
  Sex: Female

DRUGS (15)
  1. REVLIMID [Suspect]
     Route: 048
     Dates: start: 20081212, end: 20090120
  2. REVLIMID [Suspect]
     Route: 048
     Dates: start: 20090126
  3. ANASTRAZOLE [Concomitant]
     Indication: DRUG USE FOR UNKNOWN INDICATION
     Route: 065
  4. ALLOPURINOL [Concomitant]
     Indication: DRUG USE FOR UNKNOWN INDICATION
     Route: 065
  5. AUGMENTIN '125' [Concomitant]
     Indication: DRUG USE FOR UNKNOWN INDICATION
     Route: 065
  6. FLUCONAZOLE [Concomitant]
     Indication: ORAL CANDIDIASIS
     Route: 065
  7. FLUCONAZOLE [Concomitant]
     Route: 051
     Dates: start: 20090101
  8. MAXZIDE [Concomitant]
     Indication: DRUG USE FOR UNKNOWN INDICATION
     Route: 065
  9. VERAPAMIL [Concomitant]
     Indication: DRUG USE FOR UNKNOWN INDICATION
     Route: 065
  10. DIAZEPAM [Concomitant]
     Indication: DRUG USE FOR UNKNOWN INDICATION
     Route: 048
  11. NYSTATIN [Concomitant]
     Indication: DRUG USE FOR UNKNOWN INDICATION
     Route: 048
  12. VALTREX [Concomitant]
     Indication: DRUG USE FOR UNKNOWN INDICATION
     Route: 065
  13. MOXIFLOXACIN HCL [Concomitant]
     Indication: DRUG USE FOR UNKNOWN INDICATION
     Dosage: 400
     Route: 065
  14. METOCLOPRAMIDE [Concomitant]
     Indication: DRUG USE FOR UNKNOWN INDICATION
     Route: 065
  15. ATIVAN [Concomitant]
     Indication: DRUG USE FOR UNKNOWN INDICATION
     Route: 065

REACTIONS (5)
  - ANOREXIA [None]
  - FEBRILE NEUTROPENIA [None]
  - NAUSEA [None]
  - ORAL CANDIDIASIS [None]
  - VOMITING [None]
